FAERS Safety Report 9066874 (Version 1)
Quarter: 2013Q1

REPORT INFORMATION
  Report Type: Report from Study
  Country: US (occurrence: US)
  Receive Date: 20130214
  Receipt Date: 20130214
  Transmission Date: 20140127
  Serious: Yes (Hospitalization)
  Sender: FDA-Public Use
  Company Number: US-PFIZER INC-2013038940

PATIENT
  Age: 64 Year
  Sex: Female
  Weight: 54.42 kg

DRUGS (6)
  1. PF-05280586 [Suspect]
     Indication: RHEUMATOID ARTHRITIS
     Dosage: 1000 MG, 2 DOSES 15 DAYS APART
     Route: 042
     Dates: start: 20130107
  2. METHOTREXATE [Suspect]
     Indication: RHEUMATOID ARTHRITIS
     Dosage: 10 MG, QWEEK
     Route: 048
     Dates: start: 2005
  3. PREDNISONE [Suspect]
     Dosage: 5 MG, QD
     Route: 048
     Dates: start: 20121107
  4. TRAMADOL HCL [Suspect]
     Indication: SCIATICA
     Dosage: 50 MG, QD
     Route: 048
     Dates: start: 20121009
  5. FOLIC ACID [Concomitant]
     Indication: RHEUMATOID ARTHRITIS
     Dosage: 1 MG, 1X/DAY
     Route: 048
     Dates: start: 2005
  6. CALTRATE PLUS [Concomitant]
     Indication: OSTEOPOROSIS
     Dosage: ONE TABLET DAILY
     Route: 048
     Dates: start: 20121009

REACTIONS (1)
  - Syncope [Recovered/Resolved]
